FAERS Safety Report 8487518-X (Version None)
Quarter: 2012Q3

REPORT INFORMATION
  Report Type: 
  Country: None (occurrence: None)
  Receive Date: 20120705
  Receipt Date: 20120702
  Transmission Date: 20120928
  Serious: Yes (Other)
  Sender: FDA-Public Use
  Company Number: US-BAYER-2012-065624

PATIENT
  Sex: Female

DRUGS (2)
  1. BETASERON [Suspect]
     Dosage: UNK
     Dates: start: 20120101, end: 20120501
  2. AMPYRA [Concomitant]
     Dosage: 10 MG, UNK
     Route: 048
     Dates: start: 20111101

REACTIONS (1)
  - DRUG INEFFECTIVE [None]
